FAERS Safety Report 5893276-5 (Version None)
Quarter: 2008Q3

REPORT INFORMATION
  Report Type: 
  Country: None (occurrence: None)
  Receive Date: 20080923
  Receipt Date: 20080918
  Transmission Date: 20090109
  Serious: Yes (Hospitalization)
  Sender: FDA-Public Use
  Company Number: A0748143A

PATIENT
  Age: 69 Year
  Sex: Male

DRUGS (4)
  1. ADVAIR DISKUS 100/50 [Suspect]
     Indication: CHRONIC OBSTRUCTIVE PULMONARY DISEASE
     Dosage: 1PUFF TWICE PER DAY
     Route: 055
     Dates: start: 20070101, end: 20080601
  2. COMBIVENT [Concomitant]
  3. MEGESTROL ACETATE [Concomitant]
  4. ZOMETA [Concomitant]

REACTIONS (3)
  - BRONCHITIS [None]
  - PNEUMONIA [None]
  - RESPIRATORY FAILURE [None]
